FAERS Safety Report 14980241 (Version 1)
Quarter: 2018Q2

REPORT INFORMATION
  Report Type: Spontaneous
  Country: US (occurrence: US)
  Receive Date: 20180606
  Receipt Date: 20180606
  Transmission Date: 20180711
  Serious: No
  Sender: FDA-Public Use
  Company Number: US-009507513-1806USA001777

PATIENT
  Sex: Male

DRUGS (1)
  1. JANUMET [Suspect]
     Active Substance: METFORMIN HYDROCHLORIDE\SITAGLIPTIN PHOSPHATE
     Dosage: ONE QUARTER OF A TABLET
     Route: 048

REACTIONS (5)
  - Incorrect dosage administered [Unknown]
  - Expired product administered [Unknown]
  - Wrong technique in product usage process [Unknown]
  - No adverse event [Unknown]
  - Off label use [Unknown]
